FAERS Safety Report 7236188-7 (Version None)
Quarter: 2011Q1

REPORT INFORMATION
  Report Type: 
  Country: None (occurrence: None)
  Receive Date: 20110120
  Receipt Date: 20110111
  Transmission Date: 20110831
  Serious: Yes (Hospitalization)
  Sender: FDA-Public Use
  Company Number: US-CELGENEUS-163-20785-10110058

PATIENT
  Sex: Female

DRUGS (5)
  1. MELPHALAN [Concomitant]
     Indication: MULTIPLE MYELOMA
     Route: 048
     Dates: start: 20100317, end: 20100320
  2. PREDNISONE [Concomitant]
     Indication: MULTIPLE MYELOMA
     Route: 048
     Dates: start: 20100317, end: 20100320
  3. THALOMID [Suspect]
     Indication: MULTIPLE MYELOMA
     Route: 048
     Dates: start: 20100114, end: 20100101
  4. VELCADE [Concomitant]
     Route: 065
     Dates: start: 20100510, end: 20100923
  5. THALOMID [Suspect]
     Route: 048
     Dates: start: 20100201, end: 20100526

REACTIONS (3)
  - HERPES ZOSTER OPHTHALMIC [None]
  - FULL BLOOD COUNT DECREASED [None]
  - MULTIPLE MYELOMA [None]
